FAERS Safety Report 8808661 (Version 2)
Quarter: 2012Q4

REPORT INFORMATION
  Report Type: 
  Country: DE (occurrence: DE)
  Receive Date: 20120926
  Receipt Date: 20121017
  Transmission Date: 20130627
  Serious: Yes (Hospitalization)
  Sender: FDA-Public Use
  Company Number: PHHY2012DE082946

PATIENT
  Age: 86 Year
  Sex: Male
  Weight: 78 kg

DRUGS (5)
  1. DIOVAN [Suspect]
  2. HYDROCHLOROTHIAZIDE [Suspect]
     Dates: end: 2012
  3. BISOPROLOL [Concomitant]
  4. AMLODIPINE [Concomitant]
  5. ASS [Concomitant]

REACTIONS (2)
  - Hypokalaemia [Not Recovered/Not Resolved]
  - Hyponatraemia [Not Recovered/Not Resolved]
